FAERS Safety Report 6295082-9 (Version None)
Quarter: 2009Q3

REPORT INFORMATION
  Report Type: 
  Country: None (occurrence: None)
  Receive Date: 20090803
  Receipt Date: 20090727
  Transmission Date: 20100115
  Serious: Yes (Death, Other)
  Sender: FDA-Public Use
  Company Number: US-CELGENEUS-163-50794-09051420

PATIENT

DRUGS (1)
  1. VIDAZA [Suspect]
     Indication: DRUG USE FOR UNKNOWN INDICATION
     Route: 065
     Dates: start: 20090402, end: 20090101

REACTIONS (7)
  - DECUBITUS ULCER [None]
  - INFECTED SKIN ULCER [None]
  - INFECTION [None]
  - LEUKAEMIA [None]
  - NEOPLASM PROGRESSION [None]
  - RASH [None]
  - SKIN INFECTION [None]
